FAERS Safety Report 4401148-8 (Version None)
Quarter: 2004Q3

REPORT INFORMATION
  Report Type: 
  Country: None (occurrence: None)
  Receive Date: 20040907
  Receipt Date: 20031119
  Transmission Date: 20050211
  Serious: No
  Sender: FDA-Public Use
  Company Number: US-BRISTOL-MYERS SQUIBB COMPANY-12439139

PATIENT
  Age: 51 Year
  Sex: Male
  Weight: 86 kg

DRUGS (5)
  1. COUMADIN [Suspect]
     Indication: ATRIAL FIBRILLATION
     Dosage: STARTED ON 5 MG, INCREASED TO 6 MG AND THEN TO 7.5 MG
     Route: 048
     Dates: start: 20030301
  2. AMIODARONE HCL [Concomitant]
  3. ALTACE [Concomitant]
  4. COREG [Concomitant]
  5. LANOXIN [Concomitant]

REACTIONS (1)
  - INTERNATIONAL NORMALISED RATIO ABNORMAL [None]
